FAERS Safety Report 7803817-6 (Version None)
Quarter: 2011Q4

REPORT INFORMATION
  Report Type: 
  Country: None (occurrence: None)
  Receive Date: 20111010
  Receipt Date: 20111003
  Transmission Date: 20120403
  Serious: Yes (Death, Hospitalization)
  Sender: FDA-Public Use
  Company Number: US-TEVA-298999USA

PATIENT
  Sex: Male

DRUGS (8)
  1. CLOZAPINE [Suspect]
     Indication: SCHIZOPHRENIA
     Dosage: 250 MILLIGRAM;
     Route: 048
  2. DOCUSATE [Concomitant]
     Dosage: 100 MILLIGRAM;
  3. ZIPRASIDONE HCL [Concomitant]
     Dosage: 240 MILLIGRAM;
  4. SIMVASTATIN [Concomitant]
     Dosage: 20 MILLIGRAM;
  5. IRON [Concomitant]
     Dosage: 325 MILLIGRAM;
  6. OXYBUTYNIN [Concomitant]
     Dosage: 5 MILLIGRAM;
  7. PHENYTOIN [Concomitant]
     Dosage: 400 MILLIGRAM;
  8. BENZTROPINE MESYLATE [Concomitant]
     Dosage: 2 MILLIGRAM;

REACTIONS (1)
  - PNEUMONIA [None]
